FAERS Safety Report 12275254 (Version 1)
Quarter: 2016Q2

REPORT INFORMATION
  Report Type: Spontaneous
  Country: US (occurrence: US)
  Receive Date: 20160415
  Receipt Date: 20160415
  Transmission Date: 20160815
  Serious: Yes (Hospitalization)
  Sender: FDA-Public Use
  Company Number: US-ASTRAZENECA-2016SE37978

PATIENT
  Age: 53 Year
  Sex: Female
  Weight: 81.6 kg

DRUGS (9)
  1. MULTIVITAMIN [Concomitant]
     Active Substance: VITAMINS
     Dates: start: 1968
  2. ZOCOR [Suspect]
     Active Substance: SIMVASTATIN
     Indication: BLOOD CHOLESTEROL ABNORMAL
     Route: 065
  3. METOPROLOL TARTRATE. [Suspect]
     Active Substance: METOPROLOL TARTRATE
     Indication: ARRHYTHMIA
     Route: 048
     Dates: start: 2004
  4. BABY ASPIRIN [Concomitant]
     Active Substance: ASPIRIN
     Dates: start: 2000
  5. CRESTOR [Suspect]
     Active Substance: ROSUVASTATIN CALCIUM
     Indication: BLOOD CHOLESTEROL ABNORMAL
     Route: 048
     Dates: start: 2000, end: 2001
  6. VITAMIN D LOW [Concomitant]
     Dates: start: 2012
  7. TOPROL XL [Suspect]
     Active Substance: METOPROLOL SUCCINATE
     Indication: ARRHYTHMIA
     Route: 048
     Dates: start: 2004
  8. LIPITOR [Suspect]
     Active Substance: ATORVASTATIN CALCIUM
     Indication: BLOOD CHOLESTEROL ABNORMAL
     Dosage: GENERIC
     Route: 048
  9. CALCIUM [Concomitant]
     Active Substance: CALCIUM
     Dates: start: 1995

REACTIONS (5)
  - Headache [Recovered/Resolved]
  - Abdominal pain lower [Recovered/Resolved]
  - Gallbladder disorder [Recovered/Resolved]
  - Malaise [Recovered/Resolved]
  - Hepatic enzyme abnormal [Recovered/Resolved]

NARRATIVE: CASE EVENT DATE: 2000
